FAERS Safety Report 24298402 (Version 1)
Quarter: 2024Q3

REPORT INFORMATION
  Report Type: Spontaneous
  Country: FR (occurrence: FR)
  Receive Date: 20240909
  Receipt Date: 20240909
  Transmission Date: 20241016
  Serious: Yes (Hospitalization, Other)
  Sender: PFIZER
  Company Number: FR-ROCHE-3562499

PATIENT
  Age: 56 Year
  Sex: Male
  Weight: 80 kg

DRUGS (17)
  1. RITUXIMAB [Suspect]
     Active Substance: RITUXIMAB
     Indication: Mantle cell lymphoma
     Dosage: 825 MG; FREQ:4 WK;
     Route: 042
     Dates: start: 20240326
  2. GLOFITAMAB [Suspect]
     Active Substance: GLOFITAMAB
     Indication: Mantle cell lymphoma
     Dosage: 2.5 MG, WEEKLY
     Route: 042
     Dates: start: 20240430
  3. GLOFITAMAB [Suspect]
     Active Substance: GLOFITAMAB
     Dosage: 10 MG, WEEKLY
     Route: 042
     Dates: start: 20240507
  4. LENALIDOMIDE [Suspect]
     Active Substance: LENALIDOMIDE
     Indication: Mantle cell lymphoma
     Dosage: 20 MG, 1X/DAY
     Route: 048
     Dates: start: 20240326
  5. LENALIDOMIDE [Suspect]
     Active Substance: LENALIDOMIDE
     Dosage: 20 MG, 1X/DAY
     Route: 048
     Dates: start: 20240415
  6. OBINUTUZUMAB [Suspect]
     Active Substance: OBINUTUZUMAB
     Indication: Mantle cell lymphoma
     Dosage: 1000 MG; FREQ: .5 WK;
     Route: 042
     Dates: start: 20240424
  7. OBINUTUZUMAB [Suspect]
     Active Substance: OBINUTUZUMAB
     Dosage: 1000 MG; FREQ: .5 WK;
     Route: 042
     Dates: start: 20240425
  8. ELIQUIS [Concomitant]
     Active Substance: APIXABAN
     Dosage: 5 MG, EVERY 5 DAYS
     Route: 048
     Dates: start: 20240509
  9. LEUCOVORIN CALCIUM [Concomitant]
     Active Substance: LEUCOVORIN CALCIUM
     Indication: Anaemia
     Dosage: 25 MG, 1X/DAY
     Route: 048
     Dates: start: 20240326
  10. AERIUS (DESLORATADINE) [Concomitant]
     Active Substance: DESLORATADINE
     Indication: Urticaria
     Dosage: 5 MG, EVERY 5 DAYS
     Route: 048
     Dates: start: 20221124
  11. MORPHINE SULFATE [Concomitant]
     Active Substance: MORPHINE SULFATE
     Indication: Pain in extremity
     Dosage: 10 MG, EVERY 25 DAYS
     Route: 048
     Dates: start: 20240408
  12. SKENAN [Concomitant]
     Active Substance: MORPHINE SULFATE
     Indication: Pain in extremity
     Dosage: 60 MG, EVERY 5 DAYS
     Route: 048
     Dates: start: 20240402
  13. ACUPAN [Concomitant]
     Active Substance: NEFOPAM HYDROCHLORIDE
     Dosage: 20 MG; FREQ: .33 D;
     Route: 048
     Dates: start: 20240321, end: 20240408
  14. ACETAMINOPHEN [Concomitant]
     Active Substance: ACETAMINOPHEN
     Indication: Pyrexia
     Dosage: 10 MG; FREQ: .25 D;
     Route: 042
     Dates: start: 20240328
  15. FASTURTEC [Concomitant]
     Active Substance: RASBURICASE
     Indication: Tumour lysis syndrome
     Dosage: 7.5 MG
     Route: 042
     Dates: start: 20240429, end: 20240429
  16. BACTRIM [Concomitant]
     Active Substance: SULFAMETHOXAZOLE\TRIMETHOPRIM
     Indication: Infection
     Dosage: 800 MG; FREQ: .33 WK;
     Route: 048
     Dates: start: 20240320
  17. VALACYCLOVIR [Concomitant]
     Active Substance: VALACYCLOVIR HYDROCHLORIDE
     Indication: Viral infection
     Dosage: 500 MG, EVERY 5 DAYS
     Route: 048
     Dates: start: 20240319

REACTIONS (1)
  - Cytokine release syndrome [Recovered/Resolved]

NARRATIVE: CASE EVENT DATE: 20240508
